FAERS Safety Report 15899482 (Version 1)
Quarter: 2019Q1

REPORT INFORMATION
  Report Type: Spontaneous
  Country: FR (occurrence: FR)
  Receive Date: 20190201
  Receipt Date: 20190201
  Transmission Date: 20190417
  Serious: Yes (Hospitalization, Other)
  Sender: FDA-Public Use
  Company Number: FR-AUROBINDO-AUR-APL-2019-004181

PATIENT
  Age: 30 Year
  Sex: Male
  Weight: 69 kg

DRUGS (9)
  1. PAROXETINE. [Suspect]
     Active Substance: PAROXETINE
     Indication: TOXICITY TO VARIOUS AGENTS
     Dosage: 280 MILLIGRAM, ONCE A DAY
     Route: 048
     Dates: start: 20181116, end: 20181116
  2. SERESTA [Suspect]
     Active Substance: OXAZEPAM
     Indication: TOXICITY TO VARIOUS AGENTS
     Dosage: 1000 MILLIGRAM IN TOTAL
     Route: 048
     Dates: start: 20181116, end: 20181116
  3. COCAINE [Suspect]
     Active Substance: COCAINE
     Indication: PRODUCT USED FOR UNKNOWN INDICATION
     Dosage: UNK
     Route: 065
  4. LOXAPAC [Suspect]
     Active Substance: LOXAPINE
     Dosage: 1500 MILLIGRAM IN TOTAL (STRENGTH 50 MG)
     Route: 048
     Dates: start: 20181116, end: 20181116
  5. THERALENE [Suspect]
     Active Substance: TRIMEPRAZINE
     Indication: TOXICITY TO VARIOUS AGENTS
     Dosage: 250 MILLIGRAM IN TOTAL
     Route: 065
     Dates: start: 20181116, end: 20181116
  6. IMOVANE [Suspect]
     Active Substance: ZOPICLONE
     Indication: TOXICITY TO VARIOUS AGENTS
     Dosage: 52.5 MILLIGRAM IN  TOTAL
     Route: 065
     Dates: start: 20181116, end: 20181116
  7. CANNABIS [Suspect]
     Active Substance: CANNABIS SATIVA SUBSP. INDICA TOP
     Indication: PRODUCT USED FOR UNKNOWN INDICATION
     Dosage: UNK
     Route: 065
  8. LOXAPAC [Suspect]
     Active Substance: LOXAPINE
     Indication: TOXICITY TO VARIOUS AGENTS
     Dosage: 750 MILLIGRAM IN TOTAL
     Route: 048
     Dates: start: 20181116, end: 20181116
  9. LEPTICUR [Suspect]
     Active Substance: TROPATEPINE HYDROCHLORIDE
     Indication: TOXICITY TO VARIOUS AGENTS
     Dosage: 300 MILLIGRAM IN TOTAL
     Route: 048
     Dates: start: 20181116, end: 20181116

REACTIONS (4)
  - Drug abuse [Not Recovered/Not Resolved]
  - Tachycardia [Recovered/Resolved]
  - Toxicity to various agents [Recovered/Resolved]
  - Disturbance in attention [Recovered/Resolved]

NARRATIVE: CASE EVENT DATE: 20181116
